FAERS Safety Report 19235440 (Version 2)
Quarter: 2021Q2

REPORT INFORMATION
  Report Type: Spontaneous
  Country: CA (occurrence: CA)
  Receive Date: 20210510
  Receipt Date: 20210510
  Transmission Date: 20210717
  Serious: Yes (Other)
  Sender: FDA-Public Use
  Company Number: CA-JNJFOC-20210457793

PATIENT
  Age: 12 Year
  Sex: Male

DRUGS (3)
  1. TYLENOL [Suspect]
     Active Substance: ACETAMINOPHEN
     Indication: INFECTION
  2. TYLENOL [Suspect]
     Active Substance: ACETAMINOPHEN
     Indication: PYREXIA
  3. TYLENOL [Suspect]
     Active Substance: ACETAMINOPHEN
     Indication: BREAST DISCHARGE
     Route: 048

REACTIONS (15)
  - Autism spectrum disorder [Unknown]
  - Gastrointestinal motility disorder [Unknown]
  - Dysbiosis [Unknown]
  - Detoxification [Unknown]
  - Gastrointestinal inflammation [Unknown]
  - Multiple chemical sensitivity [Unknown]
  - Therapeutic product effect decreased [Unknown]
  - Petit mal epilepsy [Unknown]
  - Food allergy [Unknown]
  - Overgrowth fungal [Unknown]
  - Hypersensitivity [Unknown]
  - Maternal exposure during breast feeding [Unknown]
  - Immune system disorder [Unknown]
  - Mast cell activation syndrome [Unknown]
  - Decreased immune responsiveness [Unknown]

NARRATIVE: CASE EVENT DATE: 20200215
